FAERS Safety Report 6221508-2 (Version None)
Quarter: 2009Q2

REPORT INFORMATION
  Report Type: 
  Country: None (occurrence: None)
  Receive Date: 20090610
  Receipt Date: 20090529
  Transmission Date: 20091009
  Serious: Yes (Other)
  Sender: FDA-Public Use
  Company Number: PHHY2009BR21162

PATIENT
  Sex: Female
  Weight: 75 kg

DRUGS (1)
  1. METHERGINE [Suspect]
     Dosage: 1 DF, Q12H
     Route: 048

REACTIONS (4)
  - DRUG EXPOSURE VIA BREAST MILK [None]
  - DYSMENORRHOEA [None]
  - FACIAL PALSY [None]
  - NERVOUSNESS [None]
